FAERS Safety Report 8778704 (Version 1)
Quarter: 2012Q4

REPORT INFORMATION
  Report Type: Report from Study
  Country: US (occurrence: US)
  Receive Date: 20120913
  Receipt Date: 20120913
  Transmission Date: 20130627
  Serious: Yes (Hospitalization)
  Sender: FDA-Public Use
  Company Number: US-ROCHE-1112378

PATIENT
  Age: 61 Year
  Sex: Male
  Weight: 63.3 kg

DRUGS (17)
  1. AVASTIN [Suspect]
     Indication: NON-SMALL CELL LUNG CANCER
     Route: 042
     Dates: start: 20090714, end: 20090825
  2. AVASTIN [Suspect]
     Route: 065
     Dates: start: 20090923
  3. PACLITAXEL [Suspect]
     Indication: NON-SMALL CELL LUNG CANCER
     Route: 042
     Dates: start: 20090714, end: 20090825
  4. PACLITAXEL [Suspect]
     Route: 065
     Dates: start: 20090923
  5. CARBOPLATIN [Suspect]
     Indication: NON-SMALL CELL LUNG CANCER
     Dosage: 6 D/F
     Route: 042
     Dates: start: 20090714, end: 20090825
  6. CARBOPLATIN [Suspect]
     Route: 065
     Dates: start: 20090923
  7. MIRALAX [Concomitant]
     Route: 065
     Dates: start: 20090807
  8. PHENERGAN [Concomitant]
     Route: 065
     Dates: start: 20090714
  9. COMPAZINE [Concomitant]
     Route: 065
     Dates: start: 20090714
  10. ARANESP [Concomitant]
     Route: 065
     Dates: start: 20090721
  11. SENOKOT [Concomitant]
     Route: 065
     Dates: start: 20090706
  12. VITAMIN B12 [Concomitant]
     Route: 065
     Dates: start: 20090707
  13. MACROGOL [Concomitant]
  14. PROMETHAZINE HYDROCHLORIDE [Concomitant]
  15. PROCHLORPERAZINE EDISYLATE [Concomitant]
  16. FOLIC ACID [Concomitant]
  17. IBUPROFEN [Concomitant]

REACTIONS (2)
  - Pancreatitis [Recovered/Resolved]
  - Malaise [Recovered/Resolved]
